FAERS Safety Report 5405254-0 (Version None)
Quarter: 2007Q3

REPORT INFORMATION
  Report Type: 
  Country: None (occurrence: None)
  Receive Date: 20070803
  Receipt Date: 20070725
  Transmission Date: 20080115
  Serious: Yes (Other)
  Sender: FDA-Public Use
  Company Number: US-ASTRAZENECA-2007UW18017

PATIENT
  Age: 49 Year
  Sex: Male

DRUGS (5)
  1. CRESTOR [Suspect]
     Route: 048
     Dates: start: 20070301, end: 20070710
  2. ASPIRIN [Concomitant]
  3. AVANDIA [Concomitant]
  4. AMARYL [Concomitant]
  5. MULTI-VITAMIN [Concomitant]

REACTIONS (1)
  - HAEMORRHAGE [None]
